FAERS Safety Report 7731189-4 (Version None)
Quarter: 2011Q3

REPORT INFORMATION
  Report Type: 
  Country: None (occurrence: None)
  Receive Date: 20110906
  Receipt Date: 20110829
  Transmission Date: 20111222
  Serious: Yes (Life-Threatening)
  Sender: FDA-Public Use
  Company Number: PHHY2011IT76793

PATIENT
  Sex: Female

DRUGS (6)
  1. RAMIPRIL [Concomitant]
  2. AMLODIPINE [Concomitant]
  3. ALLOPURINOL [Suspect]
     Indication: HYPERURICAEMIA
     Dosage: 300 MG, DAILY
     Route: 048
     Dates: start: 20110615, end: 20110707
  4. ASPIRIN [Concomitant]
     Dosage: 100 MG, UNK
  5. FUROSEMIDE [Concomitant]
  6. NEBIVOLOL HCL [Concomitant]

REACTIONS (2)
  - HYPERPYREXIA [None]
  - LEUKOPENIA [None]
